FAERS Safety Report 9186732 (Version 1)
Quarter: 2012Q4

REPORT INFORMATION
  Report Type: 
  Country: US (occurrence: US)
  Receive Date: 20121102
  Receipt Date: 20121102
  Transmission Date: 20130627
  Serious: Yes (Other)
  Sender: FDA-Public Use
  Company Number: US-ASTELLAS-2012US005140

PATIENT
  Sex: Male

DRUGS (2)
  1. MYCAMINE [Suspect]
     Indication: FEBRILE NEUTROPENIA
     Dosage: UNK
     Route: 065
     Dates: start: 20120511, end: 20120526
  2. CHEMOTHERAPEUTICS NOS [Concomitant]
     Indication: NEOPLASM MALIGNANT
     Dosage: UNK
     Route: 065

REACTIONS (2)
  - Off label use [Unknown]
  - Hypocalcaemia [Recovered/Resolved]
